FAERS Safety Report 17135023 (Version 5)
Quarter: 2022Q4

REPORT INFORMATION
  Report Type: Spontaneous
  Country: DE (occurrence: None)
  Receive Date: 20191210
  Receipt Date: 20221102
  Transmission Date: 20230112
  Serious: Yes (Hospitalization)
  Sender: FDA-Public Use
  Company Number: DE-NODEN PHARMA DAC-NOD-2019-000188

PATIENT
  Age: 74 Year
  Sex: Female

DRUGS (33)
  1. ALISKIREN [Suspect]
     Active Substance: ALISKIREN
     Indication: Product used for unknown indication
     Dosage: 1-0-0-0
     Route: 048
  2. TORSEMIDE [Suspect]
     Active Substance: TORSEMIDE
     Indication: Product used for unknown indication
     Dosage: 1-0-0-0
     Route: 048
  3. HYDROCHLOROTHIAZIDE [Suspect]
     Active Substance: HYDROCHLOROTHIAZIDE
     Indication: Product used for unknown indication
     Dosage: 1-0-0-0
     Route: 048
  4. TIOTROPIUM BROMIDE [Concomitant]
     Active Substance: TIOTROPIUM BROMIDE
     Indication: Product used for unknown indication
  5. TIOTROPIUM BROMIDE [Concomitant]
     Active Substance: TIOTROPIUM BROMIDE
     Dosage: 2-0-2-0
     Route: 055
  6. TIOTROPIUM BROMIDE [Concomitant]
     Active Substance: TIOTROPIUM BROMIDE
     Dosage: 2-0-2-0
     Route: 055
  7. PANTOPRAZOLE SODIUM [Concomitant]
     Active Substance: PANTOPRAZOLE SODIUM
     Indication: Product used for unknown indication
     Dosage: 1-0-1-0
     Route: 048
  8. DABIGATRAN [Concomitant]
     Active Substance: DABIGATRAN
     Indication: Product used for unknown indication
     Dosage: 1-0-1-0
     Route: 048
  9. DABIGATRAN [Concomitant]
     Active Substance: DABIGATRAN
  10. DABIGATRAN [Concomitant]
     Active Substance: DABIGATRAN
  11. DABIGATRAN [Concomitant]
     Active Substance: DABIGATRAN
  12. DABIGATRAN [Concomitant]
     Active Substance: DABIGATRAN
  13. DABIGATRAN [Concomitant]
     Active Substance: DABIGATRAN
  14. DABIGATRAN [Concomitant]
     Active Substance: DABIGATRAN
  15. DABIGATRAN [Concomitant]
     Active Substance: DABIGATRAN
  16. DABIGATRAN [Concomitant]
     Active Substance: DABIGATRAN
  17. DABIGATRAN [Concomitant]
     Active Substance: DABIGATRAN
  18. DABIGATRAN [Concomitant]
     Active Substance: DABIGATRAN
  19. DABIGATRAN [Concomitant]
     Active Substance: DABIGATRAN
  20. DABIGATRAN [Concomitant]
     Active Substance: DABIGATRAN
  21. ALBUTEROL [Concomitant]
     Active Substance: ALBUTEROL
     Indication: Product used for unknown indication
     Dosage: 1-0-0-0
     Route: 055
  22. SIMVASTATIN [Concomitant]
     Active Substance: SIMVASTATIN
     Indication: Product used for unknown indication
     Dosage: 0-0-1-0
     Route: 048
  23. MONTELUKAST [Concomitant]
     Active Substance: MONTELUKAST SODIUM
     Indication: Product used for unknown indication
     Dosage: 0-0-1-0
     Route: 048
  24. BUDESONIDE [Concomitant]
     Active Substance: BUDESONIDE
     Indication: Product used for unknown indication
     Route: 055
  25. METAMIZOLE SODIUM/ Metamizol [Concomitant]
     Indication: Product used for unknown indication
     Route: 065
  26. METAMIZOLE SODIUM/ Metamizol [Concomitant]
     Dosage: 1-1-1-1
     Route: 048
  27. TOLTERODINE/ TOLTERODIN [Concomitant]
     Indication: Product used for unknown indication
     Route: 065
  28. TOLTERODINE/ TOLTERODIN [Concomitant]
     Dosage: 1-0-0-0
     Route: 048
  29. AMLODIPIN                          /00972404/ [Concomitant]
     Indication: Product used for unknown indication
     Route: 048
  30. AMLODIPIN                          /00972404/ [Concomitant]
     Dosage: 1-0-0.5-0
     Route: 048
  31. PROPAFENON                         /00546301/ [Concomitant]
     Indication: Product used for unknown indication
     Dosage: 1-0-1-0
     Route: 048
  32. RISEDRONIC ACID SODIUM/ Risedronic acid [Concomitant]
     Indication: Product used for unknown indication
     Dosage: 1-0-0-0
     Route: 048
  33. BUDESONIDE\FORMOTEROL [Concomitant]
     Active Substance: BUDESONIDE\FORMOTEROL
     Indication: Product used for unknown indication
     Dosage: 9.83/400 MICROG (1-1-1-0)
     Route: 055

REACTIONS (4)
  - Abdominal distension [Unknown]
  - General physical health deterioration [Unknown]
  - Vomiting [Unknown]
  - Hyponatraemia [Unknown]
